FAERS Safety Report 23769784 (Version 1)
Quarter: 2024Q2

REPORT INFORMATION
  Report Type: Spontaneous
  Country: US (occurrence: US)
  Receive Date: 20240422
  Receipt Date: 20240422
  Transmission Date: 20240715
  Serious: Yes (Other)
  Sender: FDA-Public Use
  Company Number: US-AMNEAL PHARMACEUTICALS-2024-AMRX-01332

PATIENT
  Age: 65 Year
  Sex: Female

DRUGS (1)
  1. METHOTREXATE [Suspect]
     Active Substance: METHOTREXATE
     Indication: Product used for unknown indication
     Dosage: 4 PILLS, DAILY
     Route: 065

REACTIONS (4)
  - Hypoxia [Recovered/Resolved]
  - Neurotoxicity [Recovered/Resolved]
  - Acute kidney injury [Recovering/Resolving]
  - Treatment noncompliance [Unknown]
